FAERS Safety Report 7184593-X (Version None)
Quarter: 2010Q4

REPORT INFORMATION
  Report Type: 
  Country: None (occurrence: None)
  Receive Date: 20101222
  Receipt Date: 20101214
  Transmission Date: 20110411
  Serious: Yes (Hospitalization, Other)
  Sender: FDA-Public Use
  Company Number: US-ELI_LILLY_AND_COMPANY-US201011000550

PATIENT
  Sex: Female
  Weight: 115.65 kg

DRUGS (10)
  1. PRASUGREL HYDROCHLORIDE [Suspect]
     Indication: ACUTE CORONARY SYNDROME
     Dosage: 10 MG, DAILY (1/D)
     Route: 065
     Dates: start: 20101003
  2. ASPIRIN [Concomitant]
     Indication: PRODUCT USED FOR UNKNOWN INDICATION
     Dosage: 325 MG, DAILY (1/D)
     Route: 065
     Dates: start: 20101003
  3. ZOCOR [Concomitant]
     Indication: HYPERLIPIDAEMIA
     Dosage: 80 MG, DAILY (1/D)
     Route: 048
  4. PROTONIX [Concomitant]
     Indication: GASTROOESOPHAGEAL REFLUX DISEASE
     Dosage: 80 MG, 2/D
     Route: 042
     Dates: start: 20101023
  5. JANUVIA [Concomitant]
     Indication: TYPE 2 DIABETES MELLITUS
     Dosage: 100 MG, DAILY (1/D)
     Route: 048
  6. DIOVAN [Concomitant]
     Indication: HYPERTENSION
     Dosage: 160 MG, DAILY (1/D)
     Route: 048
  7. NORVASC [Concomitant]
     Indication: HYPERTENSION
     Dosage: 5 MG, DAILY (1/D)
     Route: 048
  8. HEPARIN [Concomitant]
     Indication: ANTICOAGULANT THERAPY
     Dosage: 1000 IU, OTHER
     Route: 042
     Dates: start: 20101022, end: 20101022
  9. CLOPIDOGREL [Concomitant]
     Dosage: 75 MG, OTHER
     Route: 065
     Dates: start: 20101022
  10. PLAVIX [Concomitant]
     Indication: ANTIPLATELET THERAPY
     Dosage: 75 MG, DAILY (1/D)
     Route: 048
     Dates: end: 20101022

REACTIONS (2)
  - COLON CANCER [None]
  - GASTROINTESTINAL HAEMORRHAGE [None]
